FAERS Safety Report 8128165-9 (Version None)
Quarter: 2011Q4

REPORT INFORMATION
  Report Type: 
  Country: None (occurrence: None)
  Receive Date: 20111227
  Receipt Date: 20111202
  Transmission Date: 20120403
  Serious: No
  Sender: FDA-Public Use
  Company Number: PHHY2011US63195

PATIENT
  Age: 45 Year
  Sex: Female

DRUGS (2)
  1. VITAMIN D [Concomitant]
  2. GILENYA [Suspect]
     Indication: MULTIPLE SCLEROSIS
     Dosage: 0.5 MG, QD, ORAL
     Route: 048
     Dates: start: 20101228

REACTIONS (3)
  - HEADACHE [None]
  - VISION BLURRED [None]
  - LACRIMATION INCREASED [None]
